FAERS Safety Report 13062825 (Version 1)
Quarter: 2016Q4

REPORT INFORMATION
  Report Type: Report from Study
  Country: US (occurrence: US)
  Receive Date: 20161226
  Receipt Date: 20161226
  Transmission Date: 20170207
  Serious: Yes (Death, Hospitalization, Other)
  Sender: FDA-Public Use
  Company Number: PHEH2016US033509

PATIENT
  Age: 57 Year
  Sex: Male

DRUGS (3)
  1. JADENU [Suspect]
     Active Substance: DEFERASIROX
     Indication: HAEMOSIDEROSIS
     Dosage: 540 MG, QD
     Route: 048
     Dates: start: 20140923, end: 20161112
  2. DECITABINA [Concomitant]
     Indication: PRODUCT USED FOR UNKNOWN INDICATION
     Dosage: 35.6 MG, UNK (20 MG/M2)
     Route: 065
     Dates: start: 20160923, end: 20160924
  3. DECITABINA [Concomitant]
     Dosage: 35.6 MG, UNK (20 MG/M2)
     Route: 065
     Dates: start: 20161101, end: 20161105

REACTIONS (34)
  - Hypotension [Unknown]
  - Confusional state [Unknown]
  - Dehydration [Unknown]
  - Rectal ulcer [Unknown]
  - CSF protein increased [Unknown]
  - Scrotal ulcer [Unknown]
  - Myelodysplastic syndrome [Fatal]
  - Urinary incontinence [Unknown]
  - Electrolyte imbalance [Unknown]
  - Lacunar infarction [Unknown]
  - Escherichia infection [Unknown]
  - Inflammation [Unknown]
  - Diarrhoea [Unknown]
  - Large intestinal ulcer [Unknown]
  - Oxygen saturation decreased [Unknown]
  - Ascites [Unknown]
  - Aspartate aminotransferase increased [Unknown]
  - Rectal haemorrhage [Unknown]
  - Blast cell count increased [Unknown]
  - Parainfluenzae virus infection [Unknown]
  - Neutropenia [Unknown]
  - Spinal disorder [Unknown]
  - Blood creatinine increased [Unknown]
  - Nausea [Unknown]
  - Staphylococcal infection [Unknown]
  - Cytomegalovirus viraemia [Unknown]
  - Abdominal distension [Unknown]
  - Septic shock [Fatal]
  - Vomiting [Unknown]
  - Asthenia [Unknown]
  - Diffuse large B-cell lymphoma refractory [Unknown]
  - Pancytopenia [Unknown]
  - Sinus disorder [Unknown]
  - Pyrexia [Unknown]

NARRATIVE: CASE EVENT DATE: 20161117
